FAERS Safety Report 7046200-6 (Version None)
Quarter: 2010Q4

REPORT INFORMATION
  Report Type: 
  Country: None (occurrence: None)
  Receive Date: 20101014
  Receipt Date: 20101007
  Transmission Date: 20110411
  Serious: Yes (Hospitalization)
  Sender: FDA-Public Use
  Company Number: A0764388A

PATIENT
  Age: 69 Year
  Sex: Female
  Weight: 113.6 kg

DRUGS (2)
  1. AVANDIA [Suspect]
     Dosage: 4MG TWICE PER DAY
     Route: 048
     Dates: start: 20020327, end: 20030804
  2. AMARYL [Concomitant]
     Dates: start: 20040124, end: 20041221

REACTIONS (1)
  - CARDIAC FAILURE CONGESTIVE [None]
